FAERS Safety Report 10812568 (Version 1)
Quarter: 2015Q1

REPORT INFORMATION
  Report Type: Report from Study
  Country: US (occurrence: US)
  Receive Date: 20150218
  Receipt Date: 20150218
  Transmission Date: 20150721
  Serious: Yes (Hospitalization)
  Sender: FDA-Public Use
  Company Number: US-BAYER-2015-017219

PATIENT
  Age: 49 Year
  Sex: Female

DRUGS (4)
  1. CLARITHROMYCIN. [Suspect]
     Active Substance: CLARITHROMYCIN
     Indication: GASTRITIS
     Dosage: 500 MG, BID
  2. CIPROFLOXACIN. [Suspect]
     Active Substance: CIPROFLOXACIN
  3. AMOXICILLIN. [Suspect]
     Active Substance: AMOXICILLIN
     Indication: GASTRITIS
     Dosage: 1 G, BID
  4. LANSOPRAZOLE. [Suspect]
     Active Substance: LANSOPRAZOLE
     Indication: GASTRITIS
     Dosage: 30 MG, BID

REACTIONS (7)
  - Delusion [Recovered/Resolved]
  - Drug dispensing error [None]
  - Psychomotor hyperactivity [Recovered/Resolved]
  - Mood swings [Recovered/Resolved]
  - Personality change [Recovered/Resolved]
  - Pressure of speech [Recovered/Resolved]
  - Substance-induced psychotic disorder [Recovered/Resolved]
